FAERS Safety Report 21676089 (Version 1)
Quarter: 2022Q4

REPORT INFORMATION
  Report Type: Spontaneous
  Country: US (occurrence: US)
  Receive Date: 20221202
  Receipt Date: 20221202
  Transmission Date: 20230113
  Serious: Yes (Hospitalization)
  Sender: FDA-Public Use
  Company Number: US-TEVA-2022-US-2832643

PATIENT
  Age: 18 Year
  Sex: Female

DRUGS (1)
  1. ZINC [Suspect]
     Active Substance: ZINC
     Indication: Mineral supplementation
     Route: 065

REACTIONS (6)
  - Copper deficiency [Recovering/Resolving]
  - Anaemia [Recovered/Resolved]
  - Lower respiratory tract infection [Unknown]
  - Respiratory failure [Unknown]
  - Leukopenia [Unknown]
  - Neutropenia [Unknown]
